FAERS Safety Report 9270585 (Version 1)
Quarter: 2013Q2

REPORT INFORMATION
  Report Type: Spontaneous
  Country: AU (occurrence: AU)
  Receive Date: 20130503
  Receipt Date: 20130507
  Transmission Date: 20140414
  Serious: Yes (Other)
  Sender: FDA-Public Use
  Company Number: PHHY2013AU043406

PATIENT
  Age: 60 Year
  Sex: Male

DRUGS (1)
  1. METOPROLOL HEXAL [Suspect]
     Indication: BLOOD PRESSURE ABNORMAL
     Dosage: 1 DF, BID
     Route: 048
     Dates: start: 20130408, end: 20130421

REACTIONS (2)
  - Dyspnoea [Recovered/Resolved]
  - Chest pain [Recovered/Resolved]
